FAERS Safety Report 5326552-5 (Version None)
Quarter: 2007Q2

REPORT INFORMATION
  Report Type: 
  Country: None (occurrence: None)
  Receive Date: 20070516
  Receipt Date: 20070516
  Transmission Date: 20071010
  Serious: Yes (Death, Life-Threatening, Hospitalization)
  Sender: FDA-Public Use
  Company Number: US-BRISTOL-MYERS SQUIBB COMPANY-13743091

PATIENT
  Age: 43 Year
  Sex: Male

DRUGS (9)
  1. ABILIFY [Suspect]
     Indication: SCHIZOPHRENIA
     Route: 048
     Dates: start: 20070304, end: 20070308
  2. ABILIFY [Concomitant]
     Dates: start: 20070304, end: 20070307
  3. RISPERDAL [Concomitant]
     Route: 048
     Dates: start: 20070304, end: 20070310
  4. DEPAKOTE [Concomitant]
     Route: 048
     Dates: start: 20070304, end: 20070310
  5. RESTORIL [Concomitant]
     Dosage: M-TAB 2MG BID
     Dates: start: 20070304, end: 20070310
  6. ATIVAN [Concomitant]
     Route: 030
  7. MYLANTA [Concomitant]
     Route: 048
     Dates: start: 20070304, end: 20070310
  8. ACETAMINOPHEN [Concomitant]
     Dates: start: 20070304, end: 20070310
  9. FERROUS SULFATE TAB [Concomitant]

REACTIONS (4)
  - DEATH [None]
  - MYOCARDIAL INFARCTION [None]
  - RESPIRATORY ARREST [None]
  - SLEEP APNOEA SYNDROME [None]
